APPROVED DRUG PRODUCT: OXYCODONE AND ACETAMINOPHEN
Active Ingredient: ACETAMINOPHEN; OXYCODONE HYDROCHLORIDE
Strength: 300MG/5ML;10MG/5ML
Dosage Form/Route: SOLUTION;ORAL
Application: A202142 | Product #001
Applicant: MIKART LLC
Approved: Nov 27, 2018 | RLD: No | RS: No | Type: RX